FAERS Safety Report 8580268-0 (Version None)
Quarter: 2012Q3

REPORT INFORMATION
  Report Type: 
  Country: None (occurrence: None)
  Receive Date: 20120808
  Receipt Date: 20120802
  Transmission Date: 20120928
  Serious: Yes (Other)
  Sender: FDA-Public Use
  Company Number: PHHY2012US067578

PATIENT
  Age: 66 Year
  Sex: Female

DRUGS (1)
  1. ASCRIPTIN BUFFERED ARTHRITISPAIN CAPLETS [Suspect]
     Indication: RHEUMATOID ARTHRITIS

REACTIONS (2)
  - DRUG DEPENDENCE [None]
  - INCORRECT DRUG ADMINISTRATION DURATION [None]
